FAERS Safety Report 24006887 (Version 1)
Quarter: 2024Q2

REPORT INFORMATION
  Report Type: Spontaneous
  Country: CN (occurrence: CN)
  Receive Date: 20240624
  Receipt Date: 20240624
  Transmission Date: 20240715
  Serious: Yes (Other)
  Sender: FDA-Public Use
  Company Number: CN-SA-2024SA183523

PATIENT
  Age: 73 Year
  Sex: Female

DRUGS (4)
  1. OXALIPLATIN [Suspect]
     Active Substance: OXALIPLATIN
     Indication: Natural killer-cell lymphoblastic lymphoma
     Dosage: 100 MG/M2, D1-2
     Dates: start: 202404
  2. GEMCITABINE [Suspect]
     Active Substance: GEMCITABINE
     Indication: Natural killer-cell lymphoblastic lymphoma
     Dosage: 1 G/M2 D1-2
     Dates: start: 202404
  3. PEGASPARGASE [Suspect]
     Active Substance: PEGASPARGASE
     Indication: Natural killer-cell lymphoblastic lymphoma
     Dosage: 2000 IU/M2
     Dates: start: 202404
  4. PEGASPARGASE [Suspect]
     Active Substance: PEGASPARGASE
     Dosage: REDUCED TO 3000 IU
     Route: 030

REACTIONS (3)
  - Myelosuppression [Unknown]
  - Dysphoria [Unknown]
  - Mental disorder [Unknown]

NARRATIVE: CASE EVENT DATE: 20240101
